FAERS Safety Report 9747587 (Version 1)
Quarter: 2013Q4

REPORT INFORMATION
  Report Type: Spontaneous
  Country: US (occurrence: None)
  Receive Date: 20131205
  Receipt Date: 20131205
  Transmission Date: 20140711
  Serious: Yes (Hospitalization, Other)
  Sender: FDA-Public Use
  Company Number: 001635048A

PATIENT
  Age: 20 Year
  Sex: Female

DRUGS (4)
  1. PROACTIV RENEWING CLEANSER [Suspect]
     Indication: ACNE
     Dosage: TWICE DAILY DERMAL
     Dates: start: 20130926, end: 20130927
  2. PROACTIVE REPAIRING TREATMENT [Suspect]
     Indication: ACNE
     Dosage: TWICE DAILY DERMAL
     Dates: start: 20130926, end: 20130927
  3. PROACTIV ADVANCED DAILY OIL CONTROL [Suspect]
     Indication: ACNE
     Dosage: TWICE DAILY DERMAL
     Dates: start: 20130926, end: 20130927
  4. PROACTIV SPF 15 MOISTURIZER [Suspect]
     Dosage: TWICE DAILY DERMAL
     Dates: start: 20130926, end: 20130927

REACTIONS (4)
  - Swelling face [None]
  - Eye swelling [None]
  - Skin haemorrhage [None]
  - Skin fissures [None]
